FAERS Safety Report 6411233-7 (Version None)
Quarter: 2009Q4

REPORT INFORMATION
  Report Type: 
  Country: None (occurrence: None)
  Receive Date: 20091022
  Receipt Date: 20091019
  Transmission Date: 20100525
  Serious: Yes (Other)
  Sender: FDA-Public Use
  Company Number: ZM-GILEAD-2008-0018102

PATIENT
  Age: 43 Year
  Sex: Female

DRUGS (10)
  1. EMTRIVA [Suspect]
     Indication: HIV INFECTION
     Route: 048
     Dates: start: 20080130, end: 20080604
  2. EMTRIVA [Suspect]
     Route: 048
     Dates: start: 20080730
  3. VIREAD [Suspect]
     Indication: HIV INFECTION
     Route: 048
     Dates: start: 20080130, end: 20080604
  4. VIREAD [Suspect]
     Route: 048
     Dates: start: 20080730
  5. KALETRA [Suspect]
     Indication: HIV INFECTION
     Route: 048
     Dates: start: 20080130
  6. RETROVIR [Suspect]
     Indication: HIV INFECTION
     Route: 048
     Dates: start: 20080605, end: 20080729
  7. MULTI-VITAMINS [Concomitant]
  8. BACTRIM [Concomitant]
  9. MODURETIC 5-50 [Concomitant]
     Indication: HYPERTENSION
  10. LEVONOGESTEROL [Concomitant]
     Indication: CONTRACEPTION
     Dosage: (ONE CYCLE)

REACTIONS (1)
  - ABORTION SPONTANEOUS [None]
